FAERS Safety Report 7939790-X (Version None)
Quarter: 2011Q4

REPORT INFORMATION
  Report Type: 
  Country: None (occurrence: None)
  Receive Date: 20111125
  Receipt Date: 20111121
  Transmission Date: 20120403
  Serious: Yes (Life-Threatening, Hospitalization, Other)
  Sender: FDA-Public Use
  Company Number: PHHY2009DK20083

PATIENT
  Sex: Female
  Weight: 70 kg

DRUGS (9)
  1. DIANE MITE [Concomitant]
     Indication: ORAL CONTRACEPTION
     Dosage: 1 DF, QD
     Route: 048
     Dates: end: 20090309
  2. RISPERDAL [Concomitant]
  3. CLOZAPINE [Suspect]
     Dosage: 600 MG, DAILY
     Route: 048
     Dates: start: 20090127, end: 20090307
  4. CISORDINOL [Concomitant]
  5. CLOZAPINE [Suspect]
     Indication: PSYCHOTIC DISORDER
     Dates: start: 20081111
  6. CLOZAPINE [Suspect]
     Dosage: 150 MG, DAILY
     Route: 048
     Dates: start: 20081127
  7. NITROFURANTOIN [Suspect]
     Dosage: 50 MG, QD
     Dates: start: 20090217, end: 20090227
  8. TRUXAL [Concomitant]
     Indication: DEPRESSION
     Dosage: 50 MG, PRN
     Dates: end: 20090307
  9. ZOLADEX [Concomitant]

REACTIONS (20)
  - CEREBRAL HAEMORRHAGE [None]
  - COMA HEPATIC [None]
  - INFECTION [None]
  - URINARY TRACT INFECTION [None]
  - HEPATITIS TOXIC [None]
  - CONVULSION [None]
  - VOMITING [None]
  - CONSTIPATION [None]
  - PYREXIA [None]
  - ACUTE HEPATIC FAILURE [None]
  - BACK PAIN [None]
  - NAUSEA [None]
  - DIZZINESS [None]
  - LIVER DISORDER [None]
  - HEPATOCELLULAR INJURY [None]
  - VISUAL IMPAIRMENT [None]
  - EPILEPSY [None]
  - WHITE BLOOD CELL COUNT INCREASED [None]
  - PHARYNGITIS [None]
  - SALIVARY HYPERSECRETION [None]
